FAERS Safety Report 9467191 (Version 2)
Quarter: 2013Q4

REPORT INFORMATION
  Report Type: Report from Study
  Country: GB (occurrence: GB)
  Receive Date: 20130821
  Receipt Date: 20131129
  Transmission Date: 20140711
  Serious: Yes (Hospitalization)
  Sender: FDA-Public Use
  Company Number: PHHY2013GB087601

PATIENT
  Age: 44 Year
  Sex: Female

DRUGS (19)
  1. DOCETAXEL [Suspect]
     Indication: HER-2 POSITIVE BREAST CANCER
     Dosage: 150 MG, TIW
     Route: 042
     Dates: start: 20121009
  2. PACLITAXEL [Suspect]
     Indication: HER-2 POSITIVE BREAST CANCER
     Dosage: 160 MG, QW
     Dates: start: 20130621
  3. IBANDRONIC ACID [Concomitant]
     Dates: start: 20120614
  4. LANSOPRAZOLE [Concomitant]
     Dates: start: 20130530
  5. FUROSEMIDE [Concomitant]
     Dates: start: 20130328
  6. DEXAMETHASONE [Concomitant]
     Dates: start: 20130710, end: 20130712
  7. BRUFEN//IBUPROFEN [Concomitant]
     Dosage: 1 IN 1 AS REQUIRED
     Dates: start: 20121122
  8. GASTROCOTE [Concomitant]
     Dates: start: 20130417
  9. GASTROCOTE [Concomitant]
     Dosage: 1 IN 1 AS REQUIRED
     Dates: start: 20130417
  10. METHYLPREDNISOLONE [Concomitant]
     Dates: start: 20130713, end: 20130715
  11. LOPERAMIDE [Concomitant]
     Dates: start: 20130715
  12. BEMIPARIN SODIUM [Concomitant]
     Dates: start: 20130715, end: 20130718
  13. PARACETAMOL [Concomitant]
     Dates: start: 20130717
  14. RANITIDINE [Concomitant]
     Dates: start: 20130718, end: 20130718
  15. DEXCHLORPHENIRAMINE [Concomitant]
     Dates: start: 20130718, end: 20130718
  16. PERTUZUMAB [Concomitant]
     Indication: HER-2 POSITIVE BREAST CANCER
     Dosage: 420 MG, TIW
     Route: 042
     Dates: start: 20130621
  17. PERTUZUMAB [Concomitant]
     Dosage: 840 MG
     Route: 042
     Dates: start: 20121008, end: 20121008
  18. TRASTUZUMAB [Concomitant]
     Indication: HER-2 POSITIVE BREAST CANCER
     Dosage: 480 MG, TIW
     Route: 042
     Dates: start: 20130621
  19. TRASTUZUMAB [Concomitant]
     Dosage: 546 MG, TIW
     Route: 042
     Dates: start: 20121008

REACTIONS (2)
  - Neutropenic sepsis [Recovered/Resolved]
  - Dyspnoea [Recovered/Resolved]
